FAERS Safety Report 6600731-9 (Version None)
Quarter: 2010Q1

REPORT INFORMATION
  Report Type: 
  Country: None (occurrence: None)
  Receive Date: 20100223
  Receipt Date: 20100223
  Transmission Date: 20100710
  Serious: No
  Sender: FDA-Public Use
  Company Number: None

PATIENT
  Age: 59 Year
  Sex: Female
  Weight: 81.6475 kg

DRUGS (1)
  1. CYMBALTA [Suspect]
     Indication: DEPRESSION
     Dosage: ONCE DAILY
     Dates: start: 20080629, end: 20081029

REACTIONS (9)
  - ANXIETY [None]
  - BALANCE DISORDER [None]
  - DEPRESSED MOOD [None]
  - FEELING JITTERY [None]
  - HALLUCINATION, AUDITORY [None]
  - INSOMNIA [None]
  - NERVOUS SYSTEM DISORDER [None]
  - VISUAL ACUITY REDUCED [None]
  - WITHDRAWAL SYNDROME [None]
